FAERS Safety Report 6781440-2 (Version None)
Quarter: 2010Q2

REPORT INFORMATION
  Report Type: 
  Country: None (occurrence: None)
  Receive Date: 20100621
  Receipt Date: 20100616
  Transmission Date: 20101027
  Serious: Yes (Death)
  Sender: FDA-Public Use
  Company Number: AT-ROCHE-506353

PATIENT
  Sex: Female
  Weight: 86 kg

DRUGS (3)
  1. CAPECITABINE [Suspect]
     Indication: BREAST CANCER
     Route: 048
     Dates: start: 20070508, end: 20070705
  2. EPIRUBICIN [Suspect]
     Indication: BREAST CANCER
     Route: 042
     Dates: start: 20070508, end: 20070705
  3. DOCETAXEL [Suspect]
     Indication: BREAST CANCER
     Dosage: DOSE FORM REPORTED AS INFUSION
     Route: 042
     Dates: start: 20070508, end: 20070705

REACTIONS (1)
  - DEATH [None]
